FAERS Safety Report 14581530 (Version 1)
Quarter: 2018Q1

REPORT INFORMATION
  Report Type: Spontaneous
  Country: US (occurrence: US)
  Receive Date: 20180228
  Receipt Date: 20180228
  Transmission Date: 20180509
  Serious: No
  Sender: FDA-Public Use
  Company Number: US-009507513-1504USA010338

PATIENT
  Age: 23 Year
  Sex: Female
  Weight: 129.72 kg

DRUGS (13)
  1. CEFTRIAXONE. [Concomitant]
     Active Substance: CEFTRIAXONE
     Dosage: UNK UNK, UNK
  2. CEFTIN [Concomitant]
     Active Substance: CEFUROXIME AXETIL
     Dosage: UNK UNK, UNK
  3. CUBICIN [Suspect]
     Active Substance: DAPTOMYCIN
     Dosage: 4.6 MG/KG, Q24H
     Route: 042
     Dates: start: 20070801, end: 20070802
  4. ALBUTEROL. [Concomitant]
     Active Substance: ALBUTEROL
     Dosage: UNK UNK, UNK
  5. CEPHALEXIN. [Concomitant]
     Active Substance: CEPHALEXIN
     Dosage: UNK UNK, UNK
  6. SOLU-MEDROL [Concomitant]
     Active Substance: METHYLPREDNISOLONE SODIUM SUCCINATE
     Dosage: UNK UNK, UNK
  7. BACTRIM [Concomitant]
     Active Substance: SULFAMETHOXAZOLE\TRIMETHOPRIM
     Dosage: UNK UNK, UNK
     Dates: start: 20070731, end: 20070731
  8. CUBICIN [Suspect]
     Active Substance: DAPTOMYCIN
     Indication: CELLULITIS STAPHYLOCOCCAL
     Dosage: 600 MG, Q24H
     Route: 042
     Dates: start: 20070801, end: 20070802
  9. SERTRALINE HYDROCHLORIDE. [Concomitant]
     Active Substance: SERTRALINE HYDROCHLORIDE
     Dosage: UNK UNK, UNK
  10. BACITRACIN. [Concomitant]
     Active Substance: BACITRACIN
     Dosage: UNK UNK, UNK
     Dates: start: 20070731, end: 20070731
  11. NITROFURANTOIN. [Concomitant]
     Active Substance: NITROFURANTOIN
     Dosage: UNK UNK, UNK
  12. ATROVENT [Concomitant]
     Active Substance: IPRATROPIUM BROMIDE
     Dosage: UNK UNK, UNK
  13. OXACILLIN SODIUM [Concomitant]
     Active Substance: OXACILLIN SODIUM
     Dosage: UNK UNK, UNK
     Dates: start: 20070731

REACTIONS (3)
  - Chest discomfort [Recovered/Resolved]
  - Erythema [Recovered/Resolved]
  - Hyperhidrosis [Recovered/Resolved]

NARRATIVE: CASE EVENT DATE: 20070802
